FAERS Safety Report 5095237-5 (Version None)
Quarter: 2006Q3

REPORT INFORMATION
  Report Type: 
  Country: None (occurrence: None)
  Receive Date: 20060901
  Receipt Date: 20060825
  Transmission Date: 20061208
  Serious: Yes (Hospitalization, Other)
  Sender: FDA-Public Use
  Company Number: PHEH2006US10973

PATIENT
  Age: 83 Year
  Sex: Female
  Weight: 36.281 kg

DRUGS (16)
  1. COMTAN [Suspect]
     Indication: PARKINSON'S DISEASE
     Dosage: 200 MG, QID
     Route: 048
  2. AMANTADINE HCL [Suspect]
     Indication: PARKINSON'S DISEASE
     Dosage: 200 MG, BID
     Route: 048
     Dates: start: 20060401, end: 20060509
  3. AMANTADINE HCL [Suspect]
     Dosage: 200 MG, QD
     Route: 048
     Dates: start: 20060509, end: 20060516
  4. AMANTADINE HCL [Suspect]
     Dosage: 100 MG, QD
     Route: 048
     Dates: start: 20060516, end: 20060523
  5. SINEMET [Suspect]
     Indication: PARKINSON'S DISEASE
     Dosage: 25/250 MG QID
     Route: 048
     Dates: end: 20060501
  6. SINEMET [Suspect]
     Dosage: 25/250 MG TID
     Route: 048
     Dates: start: 20060501
  7. MIRAPEX [Suspect]
     Indication: PARKINSON'S DISEASE
     Dosage: 0.5 MG, QID
     Route: 048
     Dates: end: 20060501
  8. MIRAPEX [Suspect]
     Dosage: 0.5 MG, TID
     Route: 048
     Dates: start: 20060501
  9. PARCOPA [Suspect]
     Indication: PARKINSON'S DISEASE
     Dosage: CARBO/LEVO ORAL DISINTEGRATING TABS
     Route: 060
  10. ASPIRIN [Concomitant]
     Route: 048
  11. PLETAL [Concomitant]
  12. PLAVIX [Concomitant]
     Route: 048
  13. NORVASC [Concomitant]
     Indication: HYPERTENSION
     Dosage: 5 MG, BID
     Route: 048
  14. HYZAAR [Concomitant]
     Indication: HYPERTENSION
     Dosage: UNK, QD
     Route: 048
  15. DIGOXIN [Concomitant]
     Dosage: 0.125 MG, QD
     Route: 048
  16. LEXAPRO [Concomitant]
     Dosage: 20 MG, QD
     Route: 048
     Dates: start: 20060505

REACTIONS (9)
  - CONVULSION [None]
  - DELIRIUM [None]
  - DELUSION [None]
  - DYSKINESIA [None]
  - HALLUCINATION [None]
  - MUSCLE RIGIDITY [None]
  - NIGHTMARE [None]
  - PARKINSONISM [None]
  - TREMOR [None]
